FAERS Safety Report 6084223-4 (Version None)
Quarter: 2009Q1

REPORT INFORMATION
  Report Type: 
  Country: None (occurrence: None)
  Receive Date: 20090219
  Receipt Date: 20090207
  Transmission Date: 20090719
  Serious: Yes (Other)
  Sender: FDA-Public Use
  Company Number: GB-ROCHE-613652

PATIENT
  Sex: Female
  Weight: 99.7 kg

DRUGS (4)
  1. ORLISTAT [Suspect]
     Indication: OBESITY
     Route: 048
     Dates: start: 20071010
  2. ASPIRIN [Concomitant]
     Indication: UNEVALUABLE EVENT
     Route: 048
  3. SIMVASTATIN [Concomitant]
     Route: 048
  4. METFORMIN HCL [Concomitant]
     Route: 048

REACTIONS (2)
  - CEREBROVASCULAR ACCIDENT [None]
  - LOWER RESPIRATORY TRACT INFECTION [None]
